FAERS Safety Report 19976197 (Version 2)
Quarter: 2023Q1

REPORT INFORMATION
  Report Type: Spontaneous
  Country: DE (occurrence: DE)
  Receive Date: 20211020
  Receipt Date: 20230104
  Transmission Date: 20230418
  Serious: Yes (Life-Threatening, Hospitalization, Other)
  Sender: FDA-Public Use
  Company Number: DE-OTSUKA-2021_023039

PATIENT
  Age: 61 Year
  Sex: Male

DRUGS (15)
  1. QUETIAPINE [Suspect]
     Active Substance: QUETIAPINE
     Indication: Product used for unknown indication
     Dosage: 200 MG, QD
     Route: 065
     Dates: start: 20201015, end: 20201019
  2. QUETIAPINE [Suspect]
     Active Substance: QUETIAPINE
     Dosage: 50 MILLIGRAM
     Route: 065
     Dates: start: 20201006, end: 20201008
  3. QUETIAPINE [Suspect]
     Active Substance: QUETIAPINE
     Dosage: 150 MILLIGRAM
     Route: 065
     Dates: start: 20201013, end: 20201014
  4. QUETIAPINE [Suspect]
     Active Substance: QUETIAPINE
     Dosage: 150 MILLIGRAM
     Route: 065
     Dates: start: 20201028, end: 20201029
  5. QUETIAPINE [Suspect]
     Active Substance: QUETIAPINE
     Dosage: 100 MILLIGRAM
     Route: 065
     Dates: start: 20201009, end: 20201012
  6. QUETIAPINE [Suspect]
     Active Substance: QUETIAPINE
     Dosage: 250 MILLIGRAM
     Route: 065
     Dates: start: 20201020, end: 20201026
  7. QUETIAPINE [Suspect]
     Active Substance: QUETIAPINE
     Dosage: 100 MILLIGRAM
     Route: 065
     Dates: start: 20201030, end: 20201030
  8. ARIPIPRAZOLE [Suspect]
     Active Substance: ARIPIPRAZOLE
     Indication: Depression
     Dosage: 1 MILLIGRAM, QD
     Route: 065
     Dates: start: 20201031, end: 20201103
  9. ARIPIPRAZOLE [Suspect]
     Active Substance: ARIPIPRAZOLE
     Indication: Bipolar disorder
     Dosage: 10 MILLIGRAM
     Route: 065
  10. LITHIUM CARBONATE [Suspect]
     Active Substance: LITHIUM CARBONATE
     Indication: Product used for unknown indication
     Dosage: 450 MILLIGRAM (450 MG)
     Route: 065
     Dates: end: 20201103
  11. PREGABALIN [Concomitant]
     Active Substance: PREGABALIN
     Indication: Product used for unknown indication
     Dosage: 225 MG, QD
     Route: 065
     Dates: start: 20200930, end: 20201103
  12. PREGABALIN [Concomitant]
     Active Substance: PREGABALIN
     Dosage: 200 MILLIGRAM, QD
     Route: 065
     Dates: start: 20200924, end: 20200929
  13. ZOPICLONE [Concomitant]
     Active Substance: ZOPICLONE
     Indication: Product used for unknown indication
     Dosage: 7.5 MILLIGRAM, QD (7.5 MG, QD)
     Route: 065
     Dates: start: 20200924, end: 20201103
  14. PANTOPRAZOLE [Concomitant]
     Active Substance: PANTOPRAZOLE
     Indication: Product used for unknown indication
     Dosage: 40 MILLIGRAM, QD (40 MG, QD)
     Route: 065
     Dates: start: 20200924, end: 20201103
  15. TAMSULOSIN [Concomitant]
     Active Substance: TAMSULOSIN
     Indication: Product used for unknown indication
     Dosage: 0.4 MILLIGRAM, QD (0.4 MG, QD)
     Route: 065
     Dates: start: 20200924, end: 20201103

REACTIONS (3)
  - Neuroleptic malignant syndrome [Recovered/Resolved]
  - Condition aggravated [Unknown]
  - Product use in unapproved indication [Unknown]

NARRATIVE: CASE EVENT DATE: 20201025
